FAERS Safety Report 9310689 (Version 1)
Quarter: 2013Q2

REPORT INFORMATION
  Report Type: Report from Study
  Country: CA (occurrence: CA)
  Receive Date: 20130527
  Receipt Date: 20130527
  Transmission Date: 20140414
  Serious: Yes (Hospitalization)
  Sender: FDA-Public Use
  Company Number: CA-ROCHE-1228322

PATIENT
  Age: 66 Year
  Sex: Male
  Weight: 100.2 kg

DRUGS (13)
  1. XELODA [Suspect]
     Indication: RECTAL CANCER
     Route: 048
     Dates: start: 201109
  2. CRESTOR [Concomitant]
  3. AVAPRO [Concomitant]
  4. CLONAZEPAM [Concomitant]
     Route: 065
     Dates: start: 201112
  5. TEVA-RABEPRAZOLE [Concomitant]
     Route: 065
     Dates: start: 201112
  6. ELTROXIN [Concomitant]
     Route: 065
     Dates: start: 201112
  7. RATIO-LENOLTEC PRODUCT NOS [Concomitant]
     Route: 065
     Dates: start: 201112
  8. HYDROMORPHONE [Concomitant]
     Route: 065
     Dates: start: 201112
  9. CIPRALEX [Concomitant]
     Route: 065
     Dates: start: 201112
  10. QUETIAPINE [Concomitant]
     Route: 065
     Dates: start: 201112
  11. CLOPIDOGREL [Concomitant]
     Route: 065
     Dates: start: 201112
  12. GRAVOL [Concomitant]
     Route: 065
     Dates: start: 201112
  13. NORFLOXACIN [Concomitant]
     Route: 065
     Dates: start: 201112

REACTIONS (3)
  - Coma [Recovered/Resolved]
  - Renal impairment [Not Recovered/Not Resolved]
  - Malaise [Unknown]
